FAERS Safety Report 10175794 (Version 2)
Quarter: 2014Q2

REPORT INFORMATION
  Report Type: Report from Study
  Country: FR (occurrence: FR)
  Receive Date: 20140516
  Receipt Date: 20140516
  Transmission Date: 20141212
  Serious: Yes (Hospitalization)
  Sender: FDA-Public Use
  Company Number: FR-ROCHE-1161431

PATIENT
  Age: 73 Year
  Sex: Female

DRUGS (13)
  1. RITUXIMAB [Suspect]
     Indication: RHEUMATOID ARTHRITIS
     Dosage: DAY 1 (D1)
     Route: 042
     Dates: start: 20070913
  2. RITUXIMAB [Suspect]
     Dosage: DAY 15 (D15)
     Route: 042
     Dates: start: 20070927
  3. RITUXIMAB [Suspect]
     Dosage: D1
     Route: 042
     Dates: start: 20090108
  4. RITUXIMAB [Suspect]
     Dosage: D15
     Route: 042
     Dates: start: 20090123, end: 20090409
  5. ROACTEMRA [Suspect]
     Indication: RHEUMATOID ARTHRITIS
     Route: 042
  6. CORTANCYL [Concomitant]
     Dosage: 10 MG/D
     Route: 065
  7. SALAZOPYRINE [Concomitant]
     Dosage: 1G/D
     Route: 065
  8. METHYLPREDNISOLONE [Concomitant]
     Dosage: D1
     Route: 065
  9. METHYLPREDNISOLONE [Concomitant]
     Dosage: D15
     Route: 065
  10. PARACETAMOL [Concomitant]
  11. METOJECT [Concomitant]
     Route: 065
     Dates: start: 20091230
  12. HYDROXYCHLOROQUINE [Concomitant]
     Route: 065
     Dates: start: 20090409
  13. ORENCIA [Concomitant]
     Route: 065

REACTIONS (15)
  - Bronchopneumonia [Recovered/Resolved]
  - Chest pain [Unknown]
  - Musculoskeletal chest pain [Not Recovered/Not Resolved]
  - Odynophagia [Not Recovered/Not Resolved]
  - Gastrooesophageal reflux disease [Not Recovered/Not Resolved]
  - Sleep disorder [Not Recovered/Not Resolved]
  - Peripheral venous disease [Not Recovered/Not Resolved]
  - Microcytic anaemia [Not Recovered/Not Resolved]
  - Mouth ulceration [Not Recovered/Not Resolved]
  - Sciatica [Recovered/Resolved]
  - Cough [Recovered/Resolved]
  - Orthostatic hypotension [Recovered/Resolved]
  - Gastrointestinal disorder [Recovered/Resolved]
  - Anaemia [Recovered/Resolved]
  - Lung disorder [Not Recovered/Not Resolved]
